FAERS Safety Report 5194746-8 (Version None)
Quarter: 2006Q4

REPORT INFORMATION
  Report Type: 
  Country: None (occurrence: None)
  Receive Date: 20061229
  Receipt Date: 20061206
  Transmission Date: 20070319
  Serious: Yes (Other)
  Sender: FDA-Public Use
  Company Number: 2006UW27186

PATIENT
  Age: 8 Year
  Sex: Female

DRUGS (5)
  1. PULMICORT RESPULES [Suspect]
     Indication: ASTHMA
     Route: 055
     Dates: start: 20040101
  2. PREDNISONE TAB [Suspect]
     Indication: ASTHMA
     Dosage: MULTIPLE COURSES BEFORE NOVEMBER 2004
  3. PREDNISONE TAB [Suspect]
     Dosage: 20 MG BID FOR 5 DAYS
     Dates: start: 20060101
  4. PRELONE [Concomitant]
     Dosage: 5 COURSES OF ORAL CORTICOSTEROIDS
     Route: 048
     Dates: start: 20020101, end: 20040101
  5. PULMICORT [Concomitant]
     Indication: ASTHMA
     Dosage: 1-4 PUFFS DAILY; 1 PUFF DAILY WHEN WELL, 2 PUFFS BID WHEN HAVING CONCOMITANT URI 5 YEARS
     Route: 055

REACTIONS (1)
  - CATARACT [None]
